FAERS Safety Report 5000261-4 (Version None)
Quarter: 2006Q2

REPORT INFORMATION
  Report Type: 
  Country: None (occurrence: None)
  Receive Date: 20060511
  Receipt Date: 20050819
  Transmission Date: 20061013
  Serious: Yes (Other)
  Sender: FDA-Public Use
  Company Number: NO-MERCK-0508NOR00019

PATIENT
  Age: 41 Year
  Sex: Female

DRUGS (11)
  1. VIOXX [Suspect]
     Indication: RHEUMATOID ARTHRITIS
     Route: 048
     Dates: start: 20020206, end: 20020301
  2. VIOXX [Suspect]
     Route: 048
     Dates: start: 20040811, end: 20041001
  3. VIOXX [Suspect]
     Indication: FIBROMYALGIA
     Route: 048
     Dates: start: 20020206, end: 20020301
  4. VIOXX [Suspect]
     Route: 048
     Dates: start: 20040811, end: 20041001
  5. CELECOXIB [Suspect]
     Indication: RHEUMATOID ARTHRITIS
     Route: 048
     Dates: start: 20011101, end: 20040722
  6. CELECOXIB [Suspect]
     Indication: FIBROMYALGIA
     Route: 048
     Dates: start: 20011101, end: 20040722
  7. MAXALT [Concomitant]
     Indication: MIGRAINE
     Route: 048
     Dates: start: 20020409
  8. ACETAMINOPHEN AND CODEINE PHOSPHATE [Concomitant]
     Indication: RHEUMATOID ARTHRITIS
     Route: 048
     Dates: start: 20000403
  9. ACETAMINOPHEN AND CODEINE PHOSPHATE [Concomitant]
     Indication: FIBROMYALGIA
     Route: 048
     Dates: start: 20000403
  10. ASPIRIN AND MAGNESIUM OXIDE [Concomitant]
     Indication: BRAIN DAMAGE
     Route: 048
     Dates: start: 20030915
  11. OMEPRAZOLE MAGNESIUM [Concomitant]
     Indication: PROPHYLAXIS
     Route: 048
     Dates: start: 20020307

REACTIONS (3)
  - CEREBROVASCULAR ACCIDENT [None]
  - GASTRIC DISORDER [None]
  - HYPERSENSITIVITY [None]
